FAERS Safety Report 8218612-6 (Version None)
Quarter: 2012Q1

REPORT INFORMATION
  Report Type: 
  Country: None (occurrence: None)
  Receive Date: 20120319
  Receipt Date: 20120307
  Transmission Date: 20120608
  Serious: Yes (Hospitalization)
  Sender: FDA-Public Use
  Company Number: FR-SANOFI-AVENTIS-2012SA015350

PATIENT
  Age: 68 Year
  Sex: Male

DRUGS (9)
  1. AVODART [Suspect]
     Route: 048
     Dates: start: 20110426, end: 20110506
  2. LACTULOSE [Concomitant]
     Dosage: FORM: PACKET
  3. NEXIUM [Concomitant]
     Route: 048
  4. MABTHERA [Concomitant]
     Dosage: FREQUENCY: 611MG/CURE
     Dates: start: 20110401
  5. GEMCITABINE [Concomitant]
     Dosage: FREQUENCY: 815 MG/CURE
     Dates: start: 20110401
  6. ACETAMINOPHEN [Concomitant]
  7. ALFUZOSIN HCL [Suspect]
     Route: 048
     Dates: start: 20110426, end: 20110506
  8. CISPLATIN [Concomitant]
     Dosage: FREQUENCY: 81.5 MG/CURE
     Dates: start: 20110401
  9. BACTRIM [Suspect]
     Dosage: DOSE:1 UNIT(S)
     Route: 048
     Dates: start: 20110426, end: 20110511

REACTIONS (1)
  - PURPURA [None]
